FAERS Safety Report 15747951 (Version 3)
Quarter: 2019Q1

REPORT INFORMATION
  Report Type: Report from Study
  Country: US (occurrence: US)
  Receive Date: 20181221
  Receipt Date: 20190301
  Transmission Date: 20190417
  Serious: Yes (Hospitalization, Other)
  Sender: FDA-Public Use
  Company Number: US-ROCHE-2228931

PATIENT
  Age: 39 Year
  Sex: Male
  Weight: 84.44 kg

DRUGS (3)
  1. OCREVUS [Suspect]
     Active Substance: OCRELIZUMAB
     Route: 042
     Dates: start: 201706
  2. OCREVUS [Suspect]
     Active Substance: OCRELIZUMAB
     Indication: PRIMARY PROGRESSIVE MULTIPLE SCLEROSIS
     Dosage: SPLIT DOSE ;ONGOING: UNKNOWN; FULL DOSE ;ONGOING: UNKNOWN
     Route: 042
  3. OCREVUS [Suspect]
     Active Substance: OCRELIZUMAB
     Dosage: ONGOING : UNKNOWN^; LAST DOSE ON 14/JUN/2018
     Route: 042
     Dates: start: 20171213

REACTIONS (5)
  - Pyrexia [Recovering/Resolving]
  - Staphylococcal infection [Unknown]
  - Cellulitis [Recovered/Resolved]
  - Fall [Unknown]
  - Infection [Recovering/Resolving]

NARRATIVE: CASE EVENT DATE: 201811
